FAERS Safety Report 8771736 (Version 2)
Quarter: 2013Q1

REPORT INFORMATION
  Report Type: Spontaneous
  Country: US (occurrence: US)
  Receive Date: 20120905
  Receipt Date: 20130124
  Transmission Date: 20140127
  Serious: Yes (Hospitalization, Disabling, Other)
  Sender: FDA-Public Use
  Company Number: US-009507513-1208USA012650

PATIENT
  Sex: 0

DRUGS (6)
  1. NUVARING [Suspect]
     Indication: CONTRACEPTION
     Dosage: UNK
     Route: 067
     Dates: start: 20100819, end: 20100830
  2. NUVARING [Suspect]
     Indication: MENORRHAGIA
  3. PROZAC [Concomitant]
     Indication: DEPRESSION
     Dosage: 20 MG, QD
     Dates: start: 201007
  4. NEXIUM [Concomitant]
     Indication: GASTROOESOPHAGEAL REFLUX DISEASE
     Dosage: 40 MG, QD
     Dates: start: 201007
  5. PROVIGIL [Concomitant]
     Indication: SOMNOLENCE
     Dosage: 100 MG, QD
     Dates: start: 201007
  6. ARTHROTEC [Concomitant]
     Indication: OSTEOARTHRITIS
     Dosage: 0.2 MG, BID
     Dates: start: 201007

REACTIONS (5)
  - Deep vein thrombosis [Recovered/Resolved]
  - Pulmonary embolism [Unknown]
  - Cardiac flutter [Unknown]
  - Renal cyst [Unknown]
  - Off label use [Unknown]
